FAERS Safety Report 7797991-8 (Version None)
Quarter: 2011Q4

REPORT INFORMATION
  Report Type: 
  Country: None (occurrence: None)
  Receive Date: 20111005
  Receipt Date: 20110928
  Transmission Date: 20120403
  Serious: Yes (Other)
  Sender: FDA-Public Use
  Company Number: TR-GLAXOSMITHKLINE-B0751011A

PATIENT
  Age: 40 Year
  Sex: Female

DRUGS (2)
  1. XELODA [Concomitant]
     Indication: BREAST CANCER METASTATIC
     Route: 065
     Dates: start: 20110501, end: 20110101
  2. TYKERB [Suspect]
     Indication: BREAST CANCER METASTATIC
     Route: 065
     Dates: start: 20110501, end: 20110101

REACTIONS (1)
  - PSORIASIS [None]
